FAERS Safety Report 6033074-5 (Version None)
Quarter: 2009Q1

REPORT INFORMATION
  Report Type: 
  Country: None (occurrence: None)
  Receive Date: 20090109
  Receipt Date: 20081231
  Transmission Date: 20090719
  Serious: Yes (Death, Hospitalization, Other)
  Sender: FDA-Public Use
  Company Number: BE-ROCHE-606261

PATIENT
  Sex: Male
  Weight: 78 kg

DRUGS (1)
  1. CAPECITABINE [Suspect]
     Dosage: DOSAGE REGIMEN: DAILY
     Route: 048
     Dates: start: 20081215, end: 20081222

REACTIONS (4)
  - MENTAL IMPAIRMENT [None]
  - NEUTROPENIC SEPSIS [None]
  - RASH [None]
  - THROMBOCYTOPENIA [None]
